FAERS Safety Report 16048661 (Version 1)
Quarter: 2019Q1

REPORT INFORMATION
  Report Type: Spontaneous
  Country: US (occurrence: US)
  Receive Date: 20190307
  Receipt Date: 20190307
  Transmission Date: 20190418
  Serious: No
  Sender: FDA-Public Use
  Company Number: US-SA-2019SA061413

PATIENT
  Age: 87 Year
  Sex: Female

DRUGS (2)
  1. ALLEGRA ALLERGY [Suspect]
     Active Substance: FEXOFENADINE HYDROCHLORIDE
     Indication: RASH PRURITIC
     Dosage: 180 MG, QD
     Dates: start: 2004
  2. PREDNISONE. [Suspect]
     Active Substance: PREDNISONE
     Indication: INTERVERTEBRAL DISC PROTRUSION

REACTIONS (3)
  - Rash pruritic [Unknown]
  - Feeling abnormal [Unknown]
  - Therapeutic response decreased [Unknown]
